FAERS Safety Report 7944670-X (Version None)
Quarter: 2011Q4

REPORT INFORMATION
  Report Type: 
  Country: None (occurrence: None)
  Receive Date: 20111129
  Receipt Date: 20111123
  Transmission Date: 20120403
  Serious: Yes (Hospitalization)
  Sender: FDA-Public Use
  Company Number: FR-AMGEN-FRASP2011061866

PATIENT
  Age: 64 Year
  Sex: Male

DRUGS (2)
  1. ANTINEOPLASTIC AGENTS [Concomitant]
     Indication: LUNG ADENOCARCINOMA
  2. NEULASTA [Suspect]
     Indication: CHEMOTHERAPY
     Dosage: 6 MG, UNK
     Route: 051

REACTIONS (4)
  - ARTHRALGIA [None]
  - OEDEMA [None]
  - PYREXIA [None]
  - SWELLING [None]
